FAERS Safety Report 13307663 (Version 4)
Quarter: 2023Q1

REPORT INFORMATION
  Report Type: Report from Study
  Country: BR (occurrence: BR)
  Receive Date: 20170308
  Receipt Date: 20230328
  Transmission Date: 20230418
  Serious: Yes (Other)
  Sender: FDA-Public Use
  Company Number: BR-PFIZER INC-2017098140

PATIENT
  Sex: Female

DRUGS (1)
  1. PALBOCICLIB [Suspect]
     Active Substance: PALBOCICLIB
     Indication: Breast cancer
     Dosage: 125 MG, CYCLIC
     Route: 048
     Dates: start: 20161226

REACTIONS (5)
  - Dermatitis bullous [Recovered/Resolved]
  - Neutropenia [Unknown]
  - Pruritus [Recovered/Resolved]
  - Asthenia [Unknown]
  - Influenza [Unknown]

NARRATIVE: CASE EVENT DATE: 20161226
